FAERS Safety Report 9506320 (Version 1)
Quarter: 2013Q1

REPORT INFORMATION
  Report Type: Spontaneous
  Country: US (occurrence: None)
  Receive Date: 20130301
  Receipt Date: 20130301
  Transmission Date: 20140127
  Serious: Yes (Other)
  Sender: FDA-Public Use
  Company Number: RB-44352-2012

PATIENT
  Sex: Female

DRUGS (4)
  1. SUBUTEX [Suspect]
     Indication: DRUG DEPENDENCE
     Route: 064
     Dates: start: 201108, end: 20120309
  2. SUBOXONE [Suspect]
     Indication: DRUG DEPENDENCE
     Dosage: (DOSING DETAILS UNKNOWN TRANSPLACENTAL)
     Dates: start: 2011, end: 2011
  3. PRENATAL VITAMINS [Concomitant]
  4. NICOTINE [Concomitant]

REACTIONS (3)
  - Drug withdrawal syndrome neonatal [None]
  - Low birth weight baby [None]
  - Foetal exposure during pregnancy [None]
